FAERS Safety Report 10569363 (Version 1)
Quarter: 2014Q4

REPORT INFORMATION
  Report Type: Spontaneous
  Country: GB (occurrence: GB)
  Receive Date: 20141106
  Receipt Date: 20141106
  Transmission Date: 20150529
  Serious: Yes (Other)
  Sender: FDA-Public Use
  Company Number: PHHY2014GB142396

PATIENT
  Age: 33 Year
  Sex: Female

DRUGS (8)
  1. ABILIFY [Interacting]
     Active Substance: ARIPIPRAZOLE
     Indication: PARANOIA
     Dosage: 20 MG (FROM 15MG TO 20 MG)
     Route: 048
     Dates: start: 20140714, end: 20140805
  2. ABILIFY [Interacting]
     Active Substance: ARIPIPRAZOLE
     Indication: SCHIZOPHRENIA
     Dosage: 15 MG (FROM 15MG TO 20 MG)
     Route: 048
  3. OLANZAPINE. [Suspect]
     Active Substance: OLANZAPINE
  4. ZOPICLONE [Concomitant]
     Active Substance: ZOPICLONE
  5. DIAZEPAM. [Concomitant]
     Active Substance: DIAZEPAM
  6. METFORMIN [Concomitant]
     Active Substance: METFORMIN HYDROCHLORIDE
  7. CLOPIXOL (HYDROCHLORIDE) [Interacting]
     Active Substance: ZUCLOPENTHIXOL HYDROCHLORIDE
  8. THYROXINE [Concomitant]
     Active Substance: LEVOTHYROXINE

REACTIONS (6)
  - Drug interaction [Unknown]
  - Poor quality sleep [Recovering/Resolving]
  - Psychotic disorder [Recovered/Resolved]
  - Suicidal ideation [Unknown]
  - Off label use [Unknown]
  - Agitation [Recovered/Resolved]

NARRATIVE: CASE EVENT DATE: 201407
